FAERS Safety Report 4890022-9 (Version None)
Quarter: 2006Q1

REPORT INFORMATION
  Report Type: 
  Country: None (occurrence: None)
  Receive Date: 20060124
  Receipt Date: 20031209
  Transmission Date: 20060701
  Serious: Yes (Hospitalization, Other)
  Sender: FDA-Public Use
  Company Number: PL-NOVOPROD-234352

PATIENT
  Age: 8 Year
  Sex: Female
  Weight: 19 kg

DRUGS (4)
  1. NORDITROPIN SIMPLEXX 3.3 MG/ML [Suspect]
     Indication: FOETAL GROWTH RETARDATION
     Dosage: UNK, UNK
     Route: 058
     Dates: start: 20030707, end: 20031127
  2. NORDITROPIN SIMPLEXX 3.3 MG/ML [Suspect]
     Dosage: UNK, UNK
     Route: 058
     Dates: start: 20031211
  3. DEPRAKINE [Concomitant]
     Dosage: 300 MG, QD
     Route: 048
     Dates: start: 20040126, end: 20040404
  4. DEPRAKINE [Concomitant]
     Dosage: 400 MG, QD
     Route: 048
     Dates: start: 20040405

REACTIONS (2)
  - CONVULSION [None]
  - EPILEPSY [None]
